FAERS Safety Report 9326077 (Version 1)
Quarter: 2013Q2

REPORT INFORMATION
  Report Type: Spontaneous
  Country: US (occurrence: None)
  Receive Date: 20130603
  Receipt Date: 20130603
  Transmission Date: 20140414
  Serious: Yes (Hospitalization)
  Sender: FDA-Public Use
  Company Number: None

PATIENT
  Age: 68 Year
  Sex: Male
  Weight: 61.8 kg

DRUGS (1)
  1. DASATINIB [Suspect]
     Indication: CHORDOMA
     Dates: start: 20090630, end: 20130529

REACTIONS (2)
  - Dyspnoea [None]
  - Pneumonia [None]
